FAERS Safety Report 4712747-8 (Version None)
Quarter: 2005Q3

REPORT INFORMATION
  Report Type: 
  Country: None (occurrence: None)
  Receive Date: 20050701
  Receipt Date: 20050323
  Transmission Date: 20060218
  Serious: Yes (Hospitalization)
  Sender: FDA-Public Use
  Company Number: 2005049291

PATIENT
  Age: 14 Year
  Sex: Male
  Weight: 58.0604 kg

DRUGS (6)
  1. ZOLOFT [Suspect]
     Indication: MIGRAINE WITH AURA
     Dosage: 100 MG (100 MG, 1 IN 1 D), ORAL
     Route: 048
     Dates: start: 20050201, end: 20050317
  2. INDOMETHACIN [Concomitant]
  3. VALPROATE SODIUM [Concomitant]
  4. ATENOLOL [Concomitant]
  5. IBUPROFEN [Concomitant]
  6. ACETAMINOPHEN [Concomitant]

REACTIONS (4)
  - ABNORMAL BEHAVIOUR [None]
  - ANGER [None]
  - MIGRAINE WITH AURA [None]
  - SUICIDAL IDEATION [None]
